FAERS Safety Report 9536644 (Version 3)
Quarter: 2018Q2

REPORT INFORMATION
  Report Type: Report from Study
  Country: HU (occurrence: HU)
  Receive Date: 20130919
  Receipt Date: 20180413
  Transmission Date: 20180711
  Serious: Yes (Other)
  Sender: FDA-Public Use
  Company Number: HU-ROCHE-1277636

PATIENT

DRUGS (4)
  1. GEMCITABINE [Suspect]
     Active Substance: GEMCITABINE\GEMCITABINE HYDROCHLORIDE
     Indication: BILE DUCT CANCER
     Dosage: ON DAY 1 AND 8 OVER 60-90 MIN, FOLLOWED BY A 1 WEEK REST
     Route: 042
  2. CETUXIMAB. [Suspect]
     Active Substance: CETUXIMAB
     Indication: BILE DUCT CANCER
     Dosage: 250 MG/M2 DAILY AFTER A LOADING DOSE OF 400 MG/M2.
     Route: 065
  3. CETUXIMAB. [Suspect]
     Active Substance: CETUXIMAB
     Route: 065
  4. CAPECITABINE. [Suspect]
     Active Substance: CAPECITABINE
     Indication: BILE DUCT CANCER
     Dosage: ON DAYS 1-14. CYCLE DURATION WAS 21 D
     Route: 042

REACTIONS (18)
  - Decreased appetite [Unknown]
  - Febrile neutropenia [Unknown]
  - Pyrexia [Unknown]
  - Dermatitis acneiform [Unknown]
  - Leukopenia [Unknown]
  - Thrombocytopenia [Unknown]
  - Infection [Unknown]
  - Hypercalcaemia [Unknown]
  - Hepatic enzyme increased [Unknown]
  - Hyperbilirubinaemia [Unknown]
  - Hypersensitivity [Unknown]
  - Dyspnoea [Unknown]
  - Hyperglycaemia [Unknown]
  - Neutropenia [Unknown]
  - Pain [Unknown]
  - Epistaxis [Unknown]
  - Palmar-plantar erythrodysaesthesia syndrome [Unknown]
  - Fatigue [Unknown]
